FAERS Safety Report 5043885-0 (Version None)
Quarter: 2006Q3

REPORT INFORMATION
  Report Type: 
  Country: None (occurrence: None)
  Receive Date: 20060706
  Receipt Date: 20060626
  Transmission Date: 20061208
  Serious: Yes (Hospitalization)
  Sender: FDA-Public Use
  Company Number: US-BRISTOL-MYERS SQUIBB COMPANY-13424569

PATIENT
  Age: 44 Year
  Sex: Male
  Weight: 46 kg

DRUGS (10)
  1. REYATAZ [Suspect]
     Indication: ACQUIRED IMMUNODEFICIENCY SYNDROME
     Dates: start: 20040101, end: 20060523
  2. NORVIR [Concomitant]
     Dates: start: 20040101
  3. TRUVADA [Concomitant]
     Dates: start: 20040101
  4. BACTRIM DS [Concomitant]
  5. COREG [Concomitant]
     Dates: start: 20050101
  6. MARINOL [Concomitant]
  7. TESTOSTERONE [Concomitant]
     Dosage: ROUTE OF ADMINISTRATION: INJECTIONS
     Route: 051
     Dates: start: 20051001
  8. ORAMORPH SR [Concomitant]
  9. VIREAD [Concomitant]
     Dosage: DOSE REDUCED TO QOD, DUE TO AN INCREASE IN CREATININE. ON MAY-2006 RETURNED TO FULL DOSE.
  10. HYDROCORTISONE [Concomitant]
     Dates: start: 20040101

REACTIONS (3)
  - LACTIC ACIDOSIS [None]
  - NEPHROLITHIASIS [None]
  - WEIGHT DECREASED [None]
